FAERS Safety Report 9513292 (Version 1)
Quarter: 2013Q3

REPORT INFORMATION
  Report Type: Spontaneous
  Country: US (occurrence: US)
  Receive Date: 20130910
  Receipt Date: 20130910
  Transmission Date: 20140515
  Serious: Yes (Hospitalization)
  Sender: FDA-Public Use
  Company Number: US-ROCHE-1271610

PATIENT
  Sex: Female

DRUGS (3)
  1. PEGASYS [Suspect]
     Indication: CHRONIC HEPATITIS C
     Route: 065
  2. COPEGUS [Suspect]
     Indication: CHRONIC HEPATITIS C
     Route: 065
  3. INCIVEK [Suspect]
     Indication: CHRONIC HEPATITIS C
     Route: 065

REACTIONS (2)
  - Haematemesis [Unknown]
  - Drug administration error [Unknown]
